FAERS Safety Report 7302567-2 (Version None)
Quarter: 2011Q1

REPORT INFORMATION
  Report Type: 
  Country: None (occurrence: None)
  Receive Date: 20110218
  Receipt Date: 20110208
  Transmission Date: 20110831
  Serious: No
  Sender: FDA-Public Use
  Company Number: US-PFIZER INC-2011028274

PATIENT
  Sex: Female
  Weight: 79.365 kg

DRUGS (2)
  1. XALATAN [Suspect]
     Indication: GLAUCOMA
     Dosage: 2.5 MG, UNK
     Route: 047
     Dates: start: 20110101
  2. HYDROCHLOROTHIAZIDE [Concomitant]
     Indication: HYPERTENSION
     Dosage: 75 MG, UNK

REACTIONS (5)
  - INFLUENZA [None]
  - OCULAR HYPERAEMIA [None]
  - EYE IRRITATION [None]
  - AGEUSIA [None]
  - NASAL OEDEMA [None]
